FAERS Safety Report 7676143-6 (Version None)
Quarter: 2011Q3

REPORT INFORMATION
  Report Type: 
  Country: None (occurrence: None)
  Receive Date: 20110811
  Receipt Date: 20110801
  Transmission Date: 20111222
  Serious: Yes (Hospitalization)
  Sender: FDA-Public Use
  Company Number: US-JNJFOC-20080301004

PATIENT
  Sex: Female
  Weight: 40 kg

DRUGS (3)
  1. INFLIXIMAB [Suspect]
     Indication: CROHN'S DISEASE
     Dosage: TOTAL 4 DOSES
     Route: 042
     Dates: start: 20021113, end: 20030328
  2. HUMIRA [Concomitant]
  3. METHOTREXATE [Concomitant]

REACTIONS (2)
  - GASTROENTERITIS VIRAL [None]
  - OBSTRUCTION [None]
